FAERS Safety Report 8135423-0 (Version None)
Quarter: 2012Q1

REPORT INFORMATION
  Report Type: 
  Country: None (occurrence: None)
  Receive Date: 20120214
  Receipt Date: 20120112
  Transmission Date: 20120608
  Serious: Yes (Other)
  Sender: FDA-Public Use
  Company Number: CA-JNJFOC-20120111838

PATIENT
  Sex: Male
  Weight: 86.3 kg

DRUGS (4)
  1. PENTASA [Concomitant]
     Route: 065
  2. REMICADE [Suspect]
     Dosage: 10TH INFUSION
     Route: 042
     Dates: start: 20110921
  3. REMICADE [Suspect]
     Indication: CROHN'S DISEASE
     Route: 042
     Dates: start: 20100630
  4. REMICADE [Suspect]
     Dosage: 11TH INFUSION
     Route: 042
     Dates: start: 20111118

REACTIONS (1)
  - TENDONITIS [None]
